FAERS Safety Report 5515014-8 (Version None)
Quarter: 2007Q4

REPORT INFORMATION
  Report Type: 
  Country: None (occurrence: None)
  Receive Date: 20071113
  Receipt Date: 20061114
  Transmission Date: 20080405
  Serious: No
  Sender: FDA-Public Use
  Company Number: A0627467A

PATIENT
  Age: 88 Year
  Sex: Female

DRUGS (8)
  1. COREG [Suspect]
     Dosage: 25MG TWICE PER DAY
     Route: 048
     Dates: start: 20020101
  2. NORVASC [Concomitant]
  3. ASPIRIN [Concomitant]
  4. THEO [Concomitant]
  5. ASCORBIC ACID [Concomitant]
  6. LIPITOR [Concomitant]
  7. DIGITEK [Concomitant]
  8. ZETIA [Concomitant]

REACTIONS (3)
  - DIZZINESS [None]
  - HYPOTENSION [None]
  - NAUSEA [None]
